FAERS Safety Report 6129643-4 (Version None)
Quarter: 2009Q1

REPORT INFORMATION
  Report Type: 
  Country: None (occurrence: None)
  Receive Date: 20090323
  Receipt Date: 20090323
  Transmission Date: 20090719
  Serious: No
  Sender: FDA-Public Use
  Company Number: None

PATIENT
  Sex: Female
  Weight: 58.9676 kg

DRUGS (1)
  1. PYRIDOSTIGMINE BROMIDE [Suspect]
     Indication: MUSCULAR WEAKNESS
     Dosage: 60MG 4X/DAY PO
     Route: 048
     Dates: start: 20080916, end: 20081216

REACTIONS (1)
  - PRODUCT QUALITY ISSUE [None]
